FAERS Safety Report 21990074 (Version 2)
Quarter: 2023Q1

REPORT INFORMATION
  Report Type: Spontaneous
  Country: CO (occurrence: CO)
  Receive Date: 20230214
  Receipt Date: 20230322
  Transmission Date: 20230418
  Serious: Yes (Hospitalization)
  Sender: FDA-Public Use
  Company Number: CO-AMGEN-COLSP2023021998

PATIENT
  Age: 60 Year
  Sex: Female
  Weight: 54 kg

DRUGS (6)
  1. NEULASTA [Suspect]
     Active Substance: PEGFILGRASTIM
     Indication: Prophylaxis
     Dosage: 6000 MICROGRAM
     Route: 058
     Dates: start: 20221224
  2. RITUXIMAB [Concomitant]
     Active Substance: RITUXIMAB
     Indication: Cutaneous B-cell lymphoma
     Dosage: 1400 MILLIGRAM
     Route: 058
  3. VINCRISTINE [Concomitant]
     Active Substance: VINCRISTINE
     Indication: Cutaneous B-cell lymphoma
     Dosage: 1.4 MILLIGRAM/SQ. METER
     Route: 040
  4. DOXORUBICIN [Concomitant]
     Active Substance: DOXORUBICIN
     Indication: Cutaneous B-cell lymphoma
     Dosage: 50 MILLIGRAM/SQ. METER
     Route: 040
  5. CYCLOPHOSPHAMIDE [Concomitant]
     Active Substance: CYCLOPHOSPHAMIDE
     Indication: Cutaneous B-cell lymphoma
     Dosage: 750 MILLIGRAM/SQ. METER
     Route: 040
  6. METFORMIN [Concomitant]
     Active Substance: METFORMIN HYDROCHLORIDE
     Indication: Glucose tolerance impaired

REACTIONS (2)
  - Injection site haemorrhage [Unknown]
  - Device malfunction [Recovered/Resolved]

NARRATIVE: CASE EVENT DATE: 20230203
